FAERS Safety Report 4611904-9 (Version None)
Quarter: 2005Q2

REPORT INFORMATION
  Report Type: 
  Country: None (occurrence: None)
  Receive Date: 20050308
  Receipt Date: 20050111
  Transmission Date: 20051028
  Serious: Yes (Other)
  Sender: FDA-Public Use
  Company Number: 2004UW25606

PATIENT
  Sex: Female

DRUGS (8)
  1. CRESTOR [Suspect]
     Dates: start: 20031201
  2. LIPITOR [Suspect]
  3. PRAVACHOL [Suspect]
  4. NAPROSYN [Suspect]
  5. BEXTRA [Suspect]
  6. CELEBREX [Suspect]
  7. VIOXX [Suspect]
  8. ALEVE [Suspect]

REACTIONS (4)
  - CARDIAC DISORDER [None]
  - HYPOAESTHESIA [None]
  - MYALGIA [None]
  - RENAL CYST [None]
